FAERS Safety Report 6252218-3 (Version None)
Quarter: 2009Q2

REPORT INFORMATION
  Report Type: 
  Country: None (occurrence: None)
  Receive Date: 20090629
  Receipt Date: 20090320
  Transmission Date: 20091009
  Serious: Yes (Other)
  Sender: FDA-Public Use
  Company Number: ADR1002009

PATIENT
  Age: 33 Year
  Sex: Female

DRUGS (12)
  1. CITALOPRAM HYDROBROMIDE [Suspect]
     Indication: ANXIETY
     Dosage: 40 MG, ORAL
     Route: 048
     Dates: start: 20071001
  2. CITALOPRAM HYDROBROMIDE [Suspect]
     Indication: DEPRESSION
     Dosage: 40 MG, ORAL
     Route: 048
     Dates: start: 20071001
  3. ZOPICLONE [Concomitant]
  4. FOLIC ACID [Concomitant]
  5. AMOXICILLIN [Concomitant]
  6. PREDNISOLONE [Concomitant]
  7. PARACETAMOL [Concomitant]
  8. ERYTHROMYCIN [Concomitant]
  9. FLUTICASONE (FIXOTIDE INHALER) [Concomitant]
  10. METOCLOPRAMIDE [Concomitant]
  11. DIAZEPAM [Concomitant]
  12. CODEINE [Concomitant]

REACTIONS (8)
  - ATRIAL SEPTAL DEFECT [None]
  - CAESAREAN SECTION [None]
  - FOETAL CARDIAC DISORDER [None]
  - FOETAL GROWTH RETARDATION [None]
  - HYPOSPADIAS [None]
  - MATERNAL DRUGS AFFECTING FOETUS [None]
  - PREMATURE BABY [None]
  - VENTRICULAR SEPTAL DEFECT [None]
